FAERS Safety Report 10367198 (Version 1)
Quarter: 2014Q3

REPORT INFORMATION
  Report Type: Report from Study
  Country: US (occurrence: US)
  Receive Date: 20140807
  Receipt Date: 20140807
  Transmission Date: 20150326
  Serious: Yes (Life-Threatening, Other)
  Sender: FDA-Public Use
  Company Number: US-009507513-1407USA014572

PATIENT

DRUGS (3)
  1. PALBOCICLIB [Concomitant]
     Active Substance: PALBOCICLIB
     Indication: NON-SMALL CELL LUNG CANCER RECURRENT
  2. ZOCOR [Suspect]
     Active Substance: SIMVASTATIN
     Dosage: HIGH DOSE 80 MG
     Route: 048
  3. PALBOCICLIB [Concomitant]
     Active Substance: PALBOCICLIB
     Indication: NON-SMALL CELL LUNG CANCER
     Dosage: 125 MG DAILY ON DAYS 1-21 OF A 28-DAY CYCLE
     Route: 048

REACTIONS (2)
  - Rhabdomyolysis [Unknown]
  - Transaminases increased [Unknown]
